FAERS Safety Report 8265999-4 (Version None)
Quarter: 2012Q2

REPORT INFORMATION
  Report Type: 
  Country: None (occurrence: None)
  Receive Date: 20120403
  Receipt Date: 20120314
  Transmission Date: 20120825
  Serious: Yes (Other)
  Sender: FDA-Public Use
  Company Number: 2012P1009730

PATIENT
  Age: 15 Year
  Sex: Male

DRUGS (5)
  1. LAMOTRIGINE [Suspect]
     Indication: CONVULSION
     Dosage: 25;50 MG, QD
  2. GABAPENTIN [Concomitant]
  3. CLONAZEPAM [Concomitant]
  4. ZONISAMIDE [Concomitant]
  5. PHENOBARBITAL TAB [Concomitant]

REACTIONS (6)
  - PARASOMNIA [None]
  - PARTIAL SEIZURES [None]
  - CONDITION AGGRAVATED [None]
  - GRAND MAL CONVULSION [None]
  - SLEEP DISORDER [None]
  - SOMNAMBULISM [None]
